FAERS Safety Report 22349011 (Version 2)
Quarter: 2023Q2

REPORT INFORMATION
  Report Type: Report from Study
  Country: US (occurrence: US)
  Receive Date: 20230522
  Receipt Date: 20230529
  Transmission Date: 20230722
  Serious: Yes (Hospitalization)
  Sender: FDA-Public Use
  Company Number: US-002147023-NVSC2023US111767

PATIENT
  Sex: Female

DRUGS (3)
  1. SANDOSTATIN LAR DEPOT [Suspect]
     Active Substance: OCTREOTIDE ACETATE
     Indication: Product used for unknown indication
     Dosage: UNK
     Route: 065
  2. SANDOSTATIN LAR DEPOT [Suspect]
     Active Substance: OCTREOTIDE ACETATE
  3. SANDOSTATIN LAR DEPOT [Suspect]
     Active Substance: OCTREOTIDE ACETATE

REACTIONS (10)
  - Speech disorder [Unknown]
  - Illness [Unknown]
  - Pain [Unknown]
  - Feeding disorder [Unknown]
  - Dysstasia [Unknown]
  - Back pain [Unknown]
  - Hypotension [Unknown]
  - Abdominal pain upper [Unknown]
  - Vomiting [Unknown]
  - Product availability issue [Unknown]
